FAERS Safety Report 7531707-5 (Version None)
Quarter: 2011Q2

REPORT INFORMATION
  Report Type: 
  Country: None (occurrence: None)
  Receive Date: 20110608
  Receipt Date: 20110524
  Transmission Date: 20111010
  Serious: Yes (Death, Other)
  Sender: FDA-Public Use
  Company Number: IT-CELGENEUS-083-50794-11053144

PATIENT

DRUGS (2)
  1. VALPROIC ACID [Concomitant]
     Route: 065
  2. VIDAZA [Suspect]
     Dosage: 75 MILLIGRAM/SQ. METER
     Route: 058

REACTIONS (13)
  - NEUTROPENIA [None]
  - PANCYTOPENIA [None]
  - CEREBRAL HAEMORRHAGE [None]
  - CARDIOGENIC SHOCK [None]
  - SYSTEMIC MYCOSIS [None]
  - SEPTIC SHOCK [None]
  - THROMBOCYTOPENIA [None]
  - DISEASE PROGRESSION [None]
  - PNEUMONIA [None]
  - DEATH [None]
  - FEBRILE NEUTROPENIA [None]
  - TOXICITY TO VARIOUS AGENTS [None]
  - INJECTION SITE IRRITATION [None]
